FAERS Safety Report 11628097 (Version 2)
Quarter: 2016Q1

REPORT INFORMATION
  Report Type: Spontaneous
  Country: US (occurrence: US)
  Receive Date: 20151014
  Receipt Date: 20160106
  Transmission Date: 20160525
  Serious: No
  Sender: FDA-Public Use
  Company Number: US-BAYER-2015-443320

PATIENT
  Sex: Male

DRUGS (1)
  1. ALEVE [Suspect]
     Active Substance: NAPROXEN SODIUM
     Dosage: UNK
     Route: 048

REACTIONS (2)
  - Product counterfeit [None]
  - Expired product administered [None]
